FAERS Safety Report 10571588 (Version 1)
Quarter: 2014Q4

REPORT INFORMATION
  Report Type: Spontaneous
  Country: DE (occurrence: DE)
  Receive Date: 20141107
  Receipt Date: 20141107
  Transmission Date: 20150529
  Serious: Yes (Congenital Anomaly, Other)
  Sender: FDA-Public Use
  Company Number: DE-TEVA-519496GER

PATIENT
  Age: 1 Day
  Sex: Male

DRUGS (8)
  1. TAXOFIT FOLS?URE + METAFOLIN 800 [Concomitant]
     Indication: PROPHYLAXIS OF NEURAL TUBE DEFECT
     Dosage: .8 MILLIGRAM DAILY;
     Route: 064
     Dates: start: 20130730, end: 20131029
  2. GONAL-F [Concomitant]
     Active Substance: FOLLITROPIN
     Indication: INFERTILITY FEMALE
     Dosage: 112.5 IU (INTERNATIONAL UNIT) DAILY; 112.5 (IU/D)
     Route: 064
     Dates: start: 20130731, end: 20130811
  3. BREVACTID [Concomitant]
     Active Substance: CHORIOGONADOTROPIN ALFA
     Indication: INFERTILITY FEMALE
     Route: 064
     Dates: start: 20130812, end: 20130812
  4. AFLURIA [Concomitant]
     Active Substance: INFLUENZA VIRUS VACCINE TRIVALENT TYPE A+B AFLURIA
     Indication: IMMUNISATION
     Route: 064
     Dates: start: 20131111, end: 20131111
  5. UTROGEST [Concomitant]
     Active Substance: PROGESTERONE
     Indication: PROPHYLAXIS OF ABORTION
     Dosage: 300 MILLIGRAM DAILY;
     Route: 064
     Dates: start: 20130814, end: 20130828
  6. VIGANTOLETTEN [Concomitant]
     Active Substance: CHOLECALCIFEROL
     Indication: VITAMIN D DEFICIENCY
     Dosage: 1000 IU (INTERNATIONAL UNIT) DAILY;
     Route: 064
     Dates: start: 20131217, end: 20140511
  7. PROSTAGLANDINE [Concomitant]
     Indication: LABOUR INDUCTION
     Route: 064
     Dates: start: 20140509, end: 20140509
  8. METFORMIN [Suspect]
     Active Substance: METFORMIN HYDROCHLORIDE
     Indication: INSULIN RESISTANCE
     Dosage: 2000 MILLIGRAM DAILY; 1000-0-1000
     Route: 064
     Dates: start: 20130730, end: 20140511

REACTIONS (2)
  - Small for dates baby [Unknown]
  - Cryptorchism [Not Recovered/Not Resolved]

NARRATIVE: CASE EVENT DATE: 20140511
